FAERS Safety Report 14687178 (Version 2)
Quarter: 2018Q2

REPORT INFORMATION
  Report Type: Report from Study
  Country: CR (occurrence: CR)
  Receive Date: 20180328
  Receipt Date: 20180423
  Transmission Date: 20180711
  Serious: Yes (Other)
  Sender: FDA-Public Use
  Company Number: CR-ROCHE-2095447

PATIENT
  Age: 39 Year
  Sex: Female

DRUGS (4)
  1. MONTELUKAST SODIUM. [Suspect]
     Active Substance: MONTELUKAST SODIUM
     Indication: PRODUCT USED FOR UNKNOWN INDICATION
     Route: 065
  2. LORATADINE. [Concomitant]
     Active Substance: LORATADINE
     Indication: PRODUCT USED FOR UNKNOWN INDICATION
     Route: 065
  3. XOLAIR [Suspect]
     Active Substance: OMALIZUMAB
     Indication: ASTHMA
     Route: 065
  4. XOLAIR [Suspect]
     Active Substance: OMALIZUMAB
     Route: 065
     Dates: start: 20180314

REACTIONS (9)
  - Weight increased [Unknown]
  - Rash [Not Recovered/Not Resolved]
  - Fluid retention [Unknown]
  - Drug hypersensitivity [Not Recovered/Not Resolved]
  - Dry skin [Unknown]
  - Pruritus [Not Recovered/Not Resolved]
  - Blister [Not Recovered/Not Resolved]
  - Arthralgia [Unknown]
  - Burning sensation [Not Recovered/Not Resolved]
